FAERS Safety Report 10525906 (Version 3)
Quarter: 2017Q2

REPORT INFORMATION
  Report Type: Report from Study
  Country: AU (occurrence: AU)
  Receive Date: 20141017
  Receipt Date: 20170614
  Transmission Date: 20170829
  Serious: Yes (Other)
  Sender: FDA-Public Use
  Company Number: PHHY2014AU123058

PATIENT
  Age: 41 Year
  Sex: Female
  Weight: 59 kg

DRUGS (7)
  1. BLINDED NO TREATMENT RECEIVED [Suspect]
     Active Substance: INVESTIGATIONAL PRODUCT
     Dosage: UNK
     Route: 055
  2. EVEROLIMUS [Concomitant]
     Active Substance: EVEROLIMUS
     Indication: LYMPHANGIOLEIOMYOMATOSIS
     Dosage: 1.5 MG, BID
     Route: 048
     Dates: start: 20110602
  3. BLINDED PLACEBO [Suspect]
     Active Substance: INVESTIGATIONAL PRODUCT
     Indication: LYMPHANGIOLEIOMYOMATOSIS
     Dosage: 150 UG, QD
     Route: 055
     Dates: start: 20140903, end: 20140917
  4. BLINDED QAB149 [Suspect]
     Active Substance: INDACATEROL MALEATE
     Indication: LYMPHANGIOLEIOMYOMATOSIS
     Dosage: 150 UG, QD
     Route: 055
     Dates: start: 20140903, end: 20140917
  5. BLINDED PLACEBO [Suspect]
     Active Substance: INVESTIGATIONAL PRODUCT
     Dosage: UNK
     Route: 055
  6. BLINDED NO TREATMENT RECEIVED [Suspect]
     Active Substance: INVESTIGATIONAL PRODUCT
     Indication: LYMPHANGIOLEIOMYOMATOSIS
     Dosage: 150 UG, QD
     Route: 055
     Dates: start: 20140903, end: 20140917
  7. BLINDED QAB149 [Suspect]
     Active Substance: INDACATEROL MALEATE
     Dosage: UNK
     Route: 055

REACTIONS (1)
  - Expired device used [Recovered/Resolved]

NARRATIVE: CASE EVENT DATE: 20140903
